FAERS Safety Report 14976694 (Version 10)
Quarter: 2019Q1

REPORT INFORMATION
  Report Type: Spontaneous
  Country: DE (occurrence: DE)
  Receive Date: 20180605
  Receipt Date: 20190228
  Transmission Date: 20190417
  Serious: Yes (Death, Life-Threatening, Hospitalization, Other)
  Sender: FDA-Public Use
  Company Number: DE-BAUSCH-BL-2018-015838

PATIENT
  Age: 64 Year
  Sex: Male
  Weight: 80 kg

DRUGS (12)
  1. DICLOFENAC [Suspect]
     Active Substance: DICLOFENAC
     Indication: BONE DISORDER
  2. NOREPINEPHRINE. [Suspect]
     Active Substance: NOREPINEPHRINE
     Indication: TACHYCARDIA
  3. HYDROCHLOROTHIAZIDE/RAMIPRIL [Suspect]
     Active Substance: HYDROCHLOROTHIAZIDE\RAMIPRIL
     Indication: HYPERTENSION
     Route: 048
  4. NOREPINEPHRINE. [Suspect]
     Active Substance: NOREPINEPHRINE
     Indication: ARRHYTHMIA
     Dosage: BW/MIN
     Route: 065
  5. DICLOFENAC [Suspect]
     Active Substance: DICLOFENAC
     Indication: PAIN
  6. DICLOFENAC [Suspect]
     Active Substance: DICLOFENAC
     Indication: EXTRASKELETAL OSSIFICATION
     Dosage: 1-0-1
     Route: 048
     Dates: start: 20160411, end: 20160428
  7. DICLOFENAC [Suspect]
     Active Substance: DICLOFENAC
     Indication: ARTICULAR CALCIFICATION
  8. DICLOFENAC [Suspect]
     Active Substance: DICLOFENAC
     Indication: PROPHYLAXIS
  9. HYDROCHLOROTHIAZIDE/RAMIPRIL [Suspect]
     Active Substance: HYDROCHLOROTHIAZIDE\RAMIPRIL
     Route: 048
  10. PANTOPRAZOLE [Concomitant]
     Active Substance: PANTOPRAZOLE
     Indication: GASTRIC DISORDER
     Dosage: 1-0-0
     Route: 048
     Dates: start: 20160411, end: 20160530
  11. METAMIZOLE [Suspect]
     Active Substance: METAMIZOLE
     Indication: PAIN
     Dosage: 1-1-1-1
     Route: 048
     Dates: start: 20160409, end: 20160428
  12. BISOPROLOL [Concomitant]
     Active Substance: BISOPROLOL
     Indication: PRODUCT USED FOR UNKNOWN INDICATION
     Dosage: 1-0-0
     Route: 048

REACTIONS (15)
  - Abscess neck [Fatal]
  - Septic shock [Fatal]
  - Respiratory failure [Fatal]
  - Disorientation [Fatal]
  - Arrhythmia [Fatal]
  - Renal impairment [Fatal]
  - Restlessness [Fatal]
  - Leukopenia [Fatal]
  - Multiple organ dysfunction syndrome [Fatal]
  - Tachycardia [Fatal]
  - Pulse abnormal [Fatal]
  - Abscess [Fatal]
  - Stomatococcal infection [Fatal]
  - Leptotrichia infection [Fatal]
  - Agranulocytosis [Fatal]

NARRATIVE: CASE EVENT DATE: 20160429
